FAERS Safety Report 7068432-3 (Version None)
Quarter: 2010Q4

REPORT INFORMATION
  Report Type: 
  Country: None (occurrence: None)
  Receive Date: 20101028
  Receipt Date: 20101018
  Transmission Date: 20110411
  Serious: Yes (Hospitalization)
  Sender: FDA-Public Use
  Company Number: B0681276A

PATIENT
  Sex: Female

DRUGS (8)
  1. LANOXIN [Suspect]
     Indication: ATRIAL FIBRILLATION
     Dosage: .75MG PER DAY
     Route: 048
     Dates: start: 20100818, end: 20100818
  2. GLICLAZIDE [Concomitant]
     Dosage: 30MG PER DAY
     Route: 048
  3. BISOPROLOL FUMARATE [Concomitant]
     Dosage: 7.5MG PER DAY
     Route: 048
  4. METFORMIN HCL [Concomitant]
     Dosage: 850MG PER DAY
     Route: 048
  5. LASIX [Concomitant]
     Dosage: 100MG PER DAY
     Route: 048
  6. COUMADIN [Concomitant]
     Route: 048
  7. NITRODERM [Concomitant]
     Route: 062
  8. APROVEL [Concomitant]
     Dosage: 150MG PER DAY
     Route: 048

REACTIONS (2)
  - CARDIOACTIVE DRUG LEVEL INCREASED [None]
  - OVERDOSE [None]
